FAERS Safety Report 8318022-7 (Version None)
Quarter: 2012Q2

REPORT INFORMATION
  Report Type: 
  Country: None (occurrence: None)
  Receive Date: 20120427
  Receipt Date: 20120417
  Transmission Date: 20120825
  Serious: Yes (Hospitalization)
  Sender: FDA-Public Use
  Company Number: AU-ABBOTT-12P-008-0920372-07

PATIENT
  Sex: Female

DRUGS (6)
  1. HUMIRA [Suspect]
     Route: 058
     Dates: end: 20091111
  2. HUMIRA [Suspect]
     Route: 058
     Dates: start: 20100304, end: 20100415
  3. MULTI-VITAMIN [Concomitant]
     Indication: VITAMIN SUPPLEMENTATION
     Dates: start: 20100101
  4. ISOPHANE INSULIN [Concomitant]
     Indication: GLUCOSE TOLERANCE IMPAIRED
     Dosage: VARIABLE DOSE
     Dates: start: 20100227
  5. HUMIRA [Suspect]
     Indication: CROHN'S DISEASE
     Dosage: INDUCTION
     Route: 058
     Dates: start: 20090820, end: 20090820
  6. HUMIRA [Suspect]
     Route: 058

REACTIONS (4)
  - MATERNAL EXPOSURE DURING PREGNANCY [None]
  - CAESAREAN SECTION [None]
  - FOETAL DISTRESS SYNDROME [None]
  - DRUG INEFFECTIVE [None]
